FAERS Safety Report 6898516-1 (Version None)
Quarter: 2010Q3

REPORT INFORMATION
  Report Type: 
  Country: None (occurrence: None)
  Receive Date: 20100802
  Receipt Date: 20071022
  Transmission Date: 20110219
  Serious: Yes (Other)
  Sender: FDA-Public Use
  Company Number: US-PFIZER INC-2007068084

PATIENT
  Sex: Male
  Weight: 44 kg

DRUGS (6)
  1. LYRICA [Suspect]
     Indication: NEUROPATHY PERIPHERAL
     Dates: start: 20070620, end: 20070705
  2. LYRICA [Suspect]
     Indication: ANXIETY
  3. SPIRIVA [Concomitant]
  4. ALBUTEROL [Concomitant]
  5. LORAZEPAM [Concomitant]
  6. LIDODERM [Concomitant]

REACTIONS (1)
  - OEDEMA [None]
